FAERS Safety Report 16150647 (Version 1)
Quarter: 2019Q2

REPORT INFORMATION
  Report Type: Spontaneous
  Country: US (occurrence: US)
  Receive Date: 20190228
  Receipt Date: 20190228
  Transmission Date: 20190711
  Serious: No
  Sender: FDA-Public Use
  Company Number: None

PATIENT
  Age: 40 Year
  Sex: Female

DRUGS (1)
  1. SIMPONI [Suspect]
     Active Substance: GOLIMUMAB
     Dosage: OTHER
     Route: 058
     Dates: start: 2016

REACTIONS (2)
  - Treatment noncompliance [None]
  - Arthralgia [None]

NARRATIVE: CASE EVENT DATE: 20190228
